FAERS Safety Report 19442719 (Version 1)
Quarter: 2021Q2

REPORT INFORMATION
  Report Type: Spontaneous
  Country: GB (occurrence: GB)
  Receive Date: 20210621
  Receipt Date: 20210621
  Transmission Date: 20210717
  Serious: Yes (Life-Threatening, Other)
  Sender: FDA-Public Use
  Company Number: GB-PFIZER INC-2021667009

PATIENT
  Age: 61 Year
  Sex: Male

DRUGS (5)
  1. PHENYTOIN. [Suspect]
     Active Substance: PHENYTOIN
     Indication: CARDIAC FIBRILLATION
  2. PHENYTOIN. [Suspect]
     Active Substance: PHENYTOIN
     Indication: VENTRICULAR TACHYCARDIA
     Dosage: 250 MG
  3. LIGNOCAINE [LIDOCAINE] [Suspect]
     Active Substance: LIDOCAINE
     Indication: VENTRICULAR TACHYCARDIA
     Dosage: 100 MG
     Route: 042
  4. DIGOXIN. [Concomitant]
     Active Substance: DIGOXIN
     Indication: SUICIDE ATTEMPT
     Dosage: 50 DF
     Route: 048
  5. LIGNOCAINE [LIDOCAINE] [Suspect]
     Active Substance: LIDOCAINE
     Indication: VENTRICULAR FIBRILLATION

REACTIONS (1)
  - Drug ineffective [Recovered/Resolved]
